FAERS Safety Report 4850829-0 (Version None)
Quarter: 2005Q4

REPORT INFORMATION
  Report Type: 
  Country: None (occurrence: None)
  Receive Date: 20051208
  Receipt Date: 20051110
  Transmission Date: 20060501
  Serious: Yes (Other)
  Sender: FDA-Public Use
  Company Number: 2005-11-0538

PATIENT
  Age: 70 Year
  Sex: Male

DRUGS (4)
  1. PEG-INTRON [Suspect]
     Indication: HEPATITIS C
     Dosage: 120 UG; SUBCUTANEOUS
     Route: 058
     Dates: start: 20050720, end: 20051028
  2. REBETOL [Suspect]
     Indication: HEPATITIS C
     Dosage: 1200 MG; ORAL
     Route: 048
     Dates: start: 20050720, end: 20051028
  3. PROPRANOLOL [Concomitant]
  4. PANTOPRAZOL [Concomitant]

REACTIONS (6)
  - DISORIENTATION [None]
  - ENCEPHALOPATHY [None]
  - HAEMOLYTIC ANAEMIA [None]
  - LEUKOPENIA [None]
  - OEDEMA [None]
  - PYREXIA [None]
